FAERS Safety Report 18777857 (Version 2)
Quarter: 2021Q2

REPORT INFORMATION
  Report Type: Spontaneous
  Country: US (occurrence: US)
  Receive Date: 20210122
  Receipt Date: 20210423
  Transmission Date: 20210717
  Serious: No
  Sender: FDA-Public Use
  Company Number: 2020SGN03032

PATIENT
  Sex: Female

DRUGS (2)
  1. TUKYSA [Suspect]
     Active Substance: TUCATINIB
     Indication: BREAST CANCER FEMALE
     Route: 048
  2. TUKYSA [Suspect]
     Active Substance: TUCATINIB
     Indication: BONE CANCER
     Dosage: 50 MG,  UNK
     Route: 048

REACTIONS (12)
  - Radiotherapy [Unknown]
  - Fall [Unknown]
  - Nausea [Recovering/Resolving]
  - Drug intolerance [Unknown]
  - Memory impairment [Unknown]
  - Metastases to central nervous system [Unknown]
  - Confusional state [Unknown]
  - Somnolence [Unknown]
  - Dehydration [Unknown]
  - Diarrhoea [Recovering/Resolving]
  - Drug ineffective [Unknown]
  - Decreased appetite [Unknown]
